FAERS Safety Report 25399030 (Version 1)
Quarter: 2025Q2

REPORT INFORMATION
  Report Type: Spontaneous
  Country: CN (occurrence: CN)
  Receive Date: 20250605
  Receipt Date: 20250605
  Transmission Date: 20250717
  Serious: Yes (Hospitalization)
  Sender: BEIGENE
  Company Number: CN-BEIGENE-BGN-2025-008624

PATIENT
  Age: 71 Year
  Weight: 53 kg

DRUGS (8)
  1. TISLELIZUMAB [Suspect]
     Active Substance: TISLELIZUMAB
     Indication: Lung neoplasm malignant
     Dosage: 200 MILLIGRAM, D1, Q3WK
  2. TISLELIZUMAB [Suspect]
     Active Substance: TISLELIZUMAB
     Dosage: 200 MILLIGRAM, D1, Q3WK
     Route: 041
  3. TISLELIZUMAB [Suspect]
     Active Substance: TISLELIZUMAB
     Dosage: 200 MILLIGRAM, D1, Q3WK
     Route: 041
  4. TISLELIZUMAB [Suspect]
     Active Substance: TISLELIZUMAB
     Dosage: 200 MILLIGRAM, D1, Q3WK
  5. NEDAPLATIN [Suspect]
     Active Substance: NEDAPLATIN
     Indication: Lung neoplasm malignant
     Dosage: 80 MILLIGRAM, D1, Q3WK
     Route: 041
  6. NEDAPLATIN [Suspect]
     Active Substance: NEDAPLATIN
     Dosage: 80 MILLIGRAM, D1, Q3WK
  7. GEMCITABINE HYDROCHLORIDE [Suspect]
     Active Substance: GEMCITABINE HYDROCHLORIDE
     Indication: Lung neoplasm malignant
     Dosage: 1200 MILLIGRAM, D1, D8, Q3WK
     Route: 041
  8. GEMCITABINE HYDROCHLORIDE [Suspect]
     Active Substance: GEMCITABINE HYDROCHLORIDE
     Dosage: 1200 MILLIGRAM, D1, D8, Q3WK

REACTIONS (1)
  - Myelosuppression [Recovering/Resolving]
